FAERS Safety Report 19248403 (Version 1)
Quarter: 2021Q2

REPORT INFORMATION
  Report Type: Spontaneous
  Country: US (occurrence: US)
  Receive Date: 20210512
  Receipt Date: 20210512
  Transmission Date: 20210717
  Serious: Yes (Death, Life-Threatening, Hospitalization, Other)
  Sender: FDA-Public Use
  Company Number: US-DRREDDYS-USA/USA/21/0135322

PATIENT
  Age: 85 Year
  Sex: Female
  Weight: 37.9 kg

DRUGS (1)
  1. LETROZOLE TABLETS [Suspect]
     Active Substance: LETROZOLE
     Indication: BREAST CANCER

REACTIONS (1)
  - Faecaloma [Fatal]
